FAERS Safety Report 20583878 (Version 1)
Quarter: 2022Q1

REPORT INFORMATION
  Report Type: Spontaneous
  Country: US (occurrence: US)
  Receive Date: 20220311
  Receipt Date: 20220311
  Transmission Date: 20220423
  Serious: Yes (Hospitalization, Other)
  Sender: FDA-Public Use
  Company Number: US-SA-SAC20220309001990

PATIENT
  Sex: Female

DRUGS (1)
  1. DUPIXENT [Suspect]
     Active Substance: DUPILUMAB
     Dosage: DUPIXENT 300 MG/2 ML PEN 2^S,300 MG, QOW
     Route: 058

REACTIONS (3)
  - Nephrolithiasis [Unknown]
  - Pruritus [Unknown]
  - Therapeutic response shortened [Unknown]
